FAERS Safety Report 14467640 (Version 2)
Quarter: 2018Q2

REPORT INFORMATION
  Report Type: Report from Study
  Country: ES (occurrence: ES)
  Receive Date: 20180131
  Receipt Date: 20180416
  Transmission Date: 20180711
  Serious: Yes (Other)
  Sender: FDA-Public Use
  Company Number: PHHO2018ES001179

PATIENT
  Age: 59 Year
  Sex: Female
  Weight: 64.4 kg

DRUGS (4)
  1. IDEOS [Concomitant]
     Active Substance: CALCIUM CARBONATE\CHOLECALCIFEROL
     Indication: OSTEOPOROSIS
     Dosage: 1250/400 MG/24HR
     Route: 065
     Dates: start: 2010
  2. ENALAPRIL [Concomitant]
     Active Substance: ENALAPRIL
     Indication: HYPERTENSION
     Dosage: 5 MG, QD
     Route: 065
     Dates: start: 2016
  3. AIN457 [Suspect]
     Active Substance: SECUKINUMAB
     Indication: PSORIATIC ARTHROPATHY
     Dosage: WEEK 28, 150MG/300MG
     Route: 058
     Dates: start: 20170605, end: 20171218
  4. URSOBILANE [Concomitant]
     Indication: CHOLESTASIS
     Dosage: 1000 MG, QD
     Route: 065
     Dates: start: 2015

REACTIONS (1)
  - Invasive ductal breast carcinoma [Not Recovered/Not Resolved]

NARRATIVE: CASE EVENT DATE: 20180117
